FAERS Safety Report 19225536 (Version 2)
Quarter: 2021Q2

REPORT INFORMATION
  Report Type: Spontaneous
  Country: US (occurrence: US)
  Receive Date: 20210505
  Receipt Date: 20210520
  Transmission Date: 20210717
  Serious: Yes (Other)
  Sender: FDA-Public Use
  Company Number: US-AUROBINDO-AUR-APL-2021-018035

PATIENT
  Sex: Female

DRUGS (2)
  1. CLOZAPINE 100 MG TABLET USP [Suspect]
     Active Substance: CLOZAPINE
     Indication: SCHIZOPHRENIA
     Dosage: 100 MILLIGRAM
     Route: 048
     Dates: start: 20210401
  2. CLOZAPINE 100 MG TABLET USP [Suspect]
     Active Substance: CLOZAPINE
     Dosage: 300 MILLIGRAM
     Route: 048

REACTIONS (1)
  - Disability [Not Recovered/Not Resolved]

NARRATIVE: CASE EVENT DATE: 20210425
